FAERS Safety Report 11932339 (Version 1)
Quarter: 2016Q1

REPORT INFORMATION
  Report Type: Spontaneous
  Country: US (occurrence: US)
  Receive Date: 20160120
  Receipt Date: 20160120
  Transmission Date: 20160526
  Serious: No
  Sender: FDA-Public Use
  Company Number: US-BAYER-2016-011330

PATIENT
  Age: 3 Year
  Sex: Male
  Weight: 17.69 kg

DRUGS (1)
  1. CHILDREN CLARITIN ALLERGY [Suspect]
     Active Substance: LORATADINE
     Indication: NASOPHARYNGITIS
     Dosage: 1 DF, QD
     Route: 048

REACTIONS (6)
  - Vomiting [Recovered/Resolved]
  - Retching [Recovered/Resolved]
  - Product quality issue [None]
  - Expired product administered [Unknown]
  - Product use issue [Unknown]
  - Off label use [Unknown]
